FAERS Safety Report 24421225 (Version 10)
Quarter: 2025Q2

REPORT INFORMATION
  Report Type: Report from Study
  Country: US (occurrence: US)
  Receive Date: 20241010
  Receipt Date: 20250519
  Transmission Date: 20250717
  Serious: No
  Sender: DECIPHERA PHARMACEUTICALS
  Company Number: US-DECIPHERA PHARMACEUTICALS LLC-2024US000858

PATIENT
  Age: 81 Year
  Sex: Female
  Weight: 48.7 kg

DRUGS (6)
  1. QINLOCK [Suspect]
     Active Substance: RIPRETINIB
     Indication: Gastrointestinal stromal tumour
     Dosage: 150 MILLIGRAM, QD
     Route: 048
     Dates: start: 20240921, end: 202409
  2. QINLOCK [Suspect]
     Active Substance: RIPRETINIB
     Dosage: 100 MILLIGRAM, QD
     Route: 048
     Dates: start: 20240924
  3. QINLOCK [Suspect]
     Active Substance: RIPRETINIB
     Dosage: 50 MILLIGRAM, QD
     Route: 048
  4. QINLOCK [Suspect]
     Active Substance: RIPRETINIB
     Route: 048
  5. QINLOCK [Suspect]
     Active Substance: RIPRETINIB
     Dosage: 50 MILLIGRAM, QD
     Route: 048
  6. QINLOCK [Suspect]
     Active Substance: RIPRETINIB
     Dosage: 100 MILLIGRAM, QD
     Route: 048

REACTIONS (28)
  - Asthenia [Unknown]
  - Arthritis [Unknown]
  - Gait disturbance [Not Recovered/Not Resolved]
  - Increased appetite [Unknown]
  - Blood pressure fluctuation [Recovering/Resolving]
  - Pain [Recovering/Resolving]
  - Dysphagia [Not Recovered/Not Resolved]
  - Dysarthria [Unknown]
  - Malaise [Not Recovered/Not Resolved]
  - Nasal congestion [Not Recovered/Not Resolved]
  - Illness [Unknown]
  - Pyrexia [Not Recovered/Not Resolved]
  - Glycosylated haemoglobin increased [Unknown]
  - Hyperkeratosis [Unknown]
  - Pain in extremity [Not Recovered/Not Resolved]
  - Melanocytic naevus [Unknown]
  - Myalgia [Recovered/Resolved]
  - Arthralgia [Unknown]
  - Fatigue [Unknown]
  - Blood bilirubin increased [Not Recovered/Not Resolved]
  - Hypertension [Unknown]
  - Dyspnoea [Recovering/Resolving]
  - Pruritus [Unknown]
  - Dry skin [Unknown]
  - Weight decreased [Unknown]
  - Product container seal issue [Unknown]
  - Underdose [Unknown]
  - Inappropriate schedule of product administration [Unknown]

NARRATIVE: CASE EVENT DATE: 20240101
